FAERS Safety Report 13160749 (Version 1)
Quarter: 2017Q1

REPORT INFORMATION
  Report Type: Spontaneous
  Country: CA (occurrence: CA)
  Receive Date: 20170129
  Receipt Date: 20170129
  Transmission Date: 20170428
  Serious: Yes (Other)
  Sender: FDA-Public Use
  Company Number: CA-ROCHE-1880942

PATIENT
  Sex: Female

DRUGS (9)
  1. PAXIL (CANADA) [Concomitant]
  2. TEMAZEPAM. [Concomitant]
     Active Substance: TEMAZEPAM
  3. MELOXICAM. [Concomitant]
     Active Substance: MELOXICAM
  4. LANSOPRAZOLE. [Concomitant]
     Active Substance: LANSOPRAZOLE
  5. ACTONEL [Concomitant]
     Active Substance: RISEDRONATE SODIUM
  6. PAROXETINE. [Concomitant]
     Active Substance: PAROXETINE
  7. CELLCEPT [Suspect]
     Active Substance: MYCOPHENOLATE MOFETIL\MYCOPHENOLATE MOFETIL HYDROCHLORIDE
     Indication: MYOSITIS
     Route: 048
     Dates: start: 200307
  8. COVERSYL [Concomitant]
     Active Substance: PERINDOPRIL
  9. PREDNISONE. [Concomitant]
     Active Substance: PREDNISONE
     Dosage: WEANING
     Route: 065

REACTIONS (2)
  - Chorioretinopathy [Unknown]
  - Scleroderma [Not Recovered/Not Resolved]

NARRATIVE: CASE EVENT DATE: 2004
